FAERS Safety Report 6683619-7 (Version None)
Quarter: 2010Q2

REPORT INFORMATION
  Report Type: 
  Country: None (occurrence: None)
  Receive Date: 20100412
  Receipt Date: 20090712
  Transmission Date: 20101027
  Serious: No
  Sender: FDA-Public Use
  Company Number: 2009-00435

PATIENT
  Age: 54 Year
  Sex: Female
  Weight: 116.1208 kg

DRUGS (9)
  1. ZICAM COLD REMEDY NASAL GEL [Suspect]
     Dosage: 2-3 X/DAY - 5+ DAYS : FEB/MAR2009-5+DAYS AFTER
  2. NORTRIPTYLINE HCL [Concomitant]
  3. LISINOPRIL [Concomitant]
  4. CHOLESTEPOL [Concomitant]
  5. METFORMIN [Concomitant]
  6. METOCARBAMOL [Concomitant]
  7. ACETAMINOPHEN ES [Concomitant]
  8. ZYRTEC OR CLARITN [Concomitant]
  9. CHLOR-TRIMETON [Concomitant]

REACTIONS (1)
  - ANOSMIA [None]
